FAERS Safety Report 24998876 (Version 1)
Quarter: 2025Q1

REPORT INFORMATION
  Report Type: Spontaneous
  Country: US (occurrence: US)
  Receive Date: 20250222
  Receipt Date: 20250222
  Transmission Date: 20250408
  Serious: No
  Sender: SANOFI AVENTIS
  Company Number: US-SA-2025SA041522

PATIENT
  Age: 18 Year
  Sex: Female

DRUGS (2)
  1. DUPIXENT [Suspect]
     Active Substance: DUPILUMAB
     Indication: Colitis ulcerative
     Dosage: 300 MG, QW
     Route: 058
     Dates: start: 202405
  2. DUPIXENT [Suspect]
     Active Substance: DUPILUMAB
     Indication: Eosinophilic oesophagitis

REACTIONS (5)
  - Weight increased [Unknown]
  - Dry skin [Unknown]
  - Erythema [Unknown]
  - Rash [Unknown]
  - Product use in unapproved indication [Unknown]

NARRATIVE: CASE EVENT DATE: 20240501
